FAERS Safety Report 9177145 (Version 5)
Quarter: 2013Q2

REPORT INFORMATION
  Report Type: Spontaneous
  Country: JP (occurrence: JP)
  Receive Date: 20130321
  Receipt Date: 20130516
  Transmission Date: 20140414
  Serious: Yes (Hospitalization, Other)
  Sender: FDA-Public Use
  Company Number: JP-EISAI INC-E2020-12114-SPO-JP

PATIENT
  Age: 80 Year
  Sex: Male
  Weight: 61 kg

DRUGS (3)
  1. ARICEPT [Suspect]
     Indication: DEMENTIA ALZHEIMER^S TYPE
     Route: 048
     Dates: start: 20130128, end: 20130220
  2. ARICEPT [Suspect]
     Route: 048
     Dates: start: 20130221, end: 2013
  3. ARICEPT [Suspect]
     Route: 048
     Dates: start: 2013, end: 20130316

REACTIONS (3)
  - Decreased appetite [Recovered/Resolved]
  - Bradycardia [Recovered/Resolved]
  - Miosis [Recovered/Resolved]
